FAERS Safety Report 14971276 (Version 2)
Quarter: 2018Q2

REPORT INFORMATION
  Report Type: Report from Study
  Country: US (occurrence: US)
  Receive Date: 20180604
  Receipt Date: 20180612
  Transmission Date: 20180711
  Serious: Yes (Hospitalization)
  Sender: FDA-Public Use
  Company Number: US-ACTELION-A-US2018-170124

PATIENT
  Age: 54 Year
  Sex: Female

DRUGS (16)
  1. OPSUMIT [Suspect]
     Active Substance: MACITENTAN
     Indication: PRODUCT USED FOR UNKNOWN INDICATION
     Dosage: 10 MG, QD
     Route: 048
     Dates: start: 20180228, end: 201805
  2. PANTOPRAZOLE [Concomitant]
     Active Substance: PANTOPRAZOLE
  3. LISINOPRIL. [Concomitant]
     Active Substance: LISINOPRIL
  4. TOPIRAMATE. [Concomitant]
     Active Substance: TOPIRAMATE
  5. METFORMIN [Concomitant]
     Active Substance: METFORMIN HYDROCHLORIDE
  6. BUSPIRONE [Concomitant]
     Active Substance: BUSPIRONE HYDROCHLORIDE
  7. TRADJENTA [Concomitant]
     Active Substance: LINAGLIPTIN
  8. FUROSEMIDE. [Concomitant]
     Active Substance: FUROSEMIDE
  9. GABAPENTIN. [Concomitant]
     Active Substance: GABAPENTIN
  10. FLUOXETINE [Concomitant]
     Active Substance: FLUOXETINE HYDROCHLORIDE
  11. ATORVASTATIN [Concomitant]
     Active Substance: ATORVASTATIN
  12. MONTELUKAST [Concomitant]
     Active Substance: MONTELUKAST SODIUM
  13. SYMBICORT [Concomitant]
     Active Substance: BUDESONIDE\FORMOTEROL FUMARATE DIHYDRATE
  14. METOPROLOL. [Concomitant]
     Active Substance: METOPROLOL
  15. AMLODIPINE [Concomitant]
     Active Substance: AMLODIPINE BESYLATE
  16. LAMOTRIGINE. [Concomitant]
     Active Substance: LAMOTRIGINE

REACTIONS (6)
  - Dysgeusia [Not Recovered/Not Resolved]
  - Drug dose omission [Unknown]
  - Migraine [Unknown]
  - Dry mouth [Not Recovered/Not Resolved]
  - Dysstasia [Unknown]
  - Muscular weakness [Unknown]

NARRATIVE: CASE EVENT DATE: 20180315
